FAERS Safety Report 19275169 (Version 2)
Quarter: 2021Q2

REPORT INFORMATION
  Report Type: Spontaneous
  Country: US (occurrence: US)
  Receive Date: 20210519
  Receipt Date: 20210519
  Transmission Date: 20210717
  Serious: Yes (Other)
  Sender: FDA-Public Use
  Company Number: US-GILEAD-2021-0530805

PATIENT
  Sex: Female

DRUGS (4)
  1. SOFOSBUVIR;VELPATASVIR [Suspect]
     Active Substance: SOFOSBUVIR\VELPATASVIR
     Indication: CHRONIC HEPATITIS C
     Dosage: 1 DOSAGE FORM, QD
     Route: 048
     Dates: start: 202101
  2. VITA?VIM [Concomitant]
  3. VITAMIN E [Concomitant]
     Active Substance: .ALPHA.-TOCOPHEROL
  4. OMEGA?3 [OMEGA?3 NOS] [Concomitant]

REACTIONS (3)
  - Brain operation [Recovered/Resolved]
  - Seizure [Unknown]
  - Product dose omission in error [Recovered/Resolved]
